FAERS Safety Report 9039048 (Version 1)
Quarter: 2013Q1

REPORT INFORMATION
  Report Type: Report from Study
  Country: US (occurrence: US)
  Receive Date: 20130129
  Receipt Date: 20130129
  Transmission Date: 20140127
  Serious: No
  Sender: FDA-Public Use
  Company Number: US-ABBOTT-12P-163-0930518-00

PATIENT
  Age: 62 Year
  Sex: Male

DRUGS (9)
  1. HUMIRA 40 MG/0.8 ML PEN [Suspect]
     Indication: PSORIASIS
     Dates: end: 20120415
  2. CRESTOR [Concomitant]
     Indication: PRODUCT USED FOR UNKNOWN INDICATION
     Dosage: 20MG DAILY
  3. BESYLATE [Concomitant]
     Indication: BLOOD PRESSURE
     Dosage: 5MG DAILY
  4. LISINOPRIL [Concomitant]
     Indication: BLOOD PRESSURE
  5. FLECAINIDE [Concomitant]
     Indication: ATRIAL FIBRILLATION
     Dosage: 100MG DAILY
  6. METOPROLOL [Concomitant]
     Indication: ATRIAL FIBRILLATION
  7. MULTIVITAMIN [Concomitant]
     Indication: PRODUCT USED FOR UNKNOWN INDICATION
  8. FISH OIL [Concomitant]
     Indication: PRODUCT USED FOR UNKNOWN INDICATION
  9. MAGNESIUM [Concomitant]
     Indication: PRODUCT USED FOR UNKNOWN INDICATION

REACTIONS (2)
  - Hypoaesthesia [Not Recovered/Not Resolved]
  - Tremor [Unknown]
